FAERS Safety Report 5316723-6 (Version None)
Quarter: 2007Q2

REPORT INFORMATION
  Report Type: 
  Country: None (occurrence: None)
  Receive Date: 20070504
  Receipt Date: 20070423
  Transmission Date: 20071010
  Serious: Yes (Hospitalization)
  Sender: FDA-Public Use
  Company Number: GB-GENENTECH-238920

PATIENT
  Sex: Male

DRUGS (6)
  1. BLINDED RANIBIZUMAB [Suspect]
     Indication: MACULAR OEDEMA
     Route: 031
     Dates: start: 20061030
  2. BLINDED SHAM INJECTION [Suspect]
     Indication: MACULAR OEDEMA
     Route: 031
     Dates: start: 20061030
  3. INSULIN [Concomitant]
     Indication: DRUG USE FOR UNKNOWN INDICATION
  4. IRBESARTAN [Concomitant]
     Indication: DRUG USE FOR UNKNOWN INDICATION
  5. SIMVASTATIN [Concomitant]
     Indication: DRUG USE FOR UNKNOWN INDICATION
  6. VIAGRA [Concomitant]
     Indication: DRUG USE FOR UNKNOWN INDICATION

REACTIONS (1)
  - GANGRENE [None]
